FAERS Safety Report 8697162 (Version 2)
Quarter: 2014Q3

REPORT INFORMATION
  Report Type: Report from Study
  Country: US (occurrence: US)
  Receive Date: 20120801
  Receipt Date: 20140904
  Transmission Date: 20150326
  Serious: Yes (Hospitalization)
  Sender: FDA-Public Use
  Company Number: US-ALEXION-A201201405

PATIENT

DRUGS (2)
  1. SOLIRIS [Suspect]
     Active Substance: ECULIZUMAB
     Dosage: 900 MG, Q2W
     Route: 042
     Dates: start: 20110816
  2. SOLIRIS [Suspect]
     Active Substance: ECULIZUMAB
     Indication: PAROXYSMAL NOCTURNAL HAEMOGLOBINURIA
     Dosage: 600 MG, QW X 4 WEEKS
     Route: 042
     Dates: start: 20090316

REACTIONS (12)
  - Diabetes mellitus [Unknown]
  - Myocardial necrosis marker increased [Unknown]
  - Bradycardia [Unknown]
  - Gastrooesophageal reflux disease [Unknown]
  - Portal vein thrombosis [Unknown]
  - Hypertension [Unknown]
  - Syncope [Unknown]
  - Chest pain [Unknown]
  - Cardiac failure [Not Recovered/Not Resolved]
  - Dyspnoea [Unknown]
  - Cardiac failure congestive [Unknown]
  - Depression [Unknown]

NARRATIVE: CASE EVENT DATE: 20120716
